FAERS Safety Report 4457046-7 (Version None)
Quarter: 2004Q3

REPORT INFORMATION
  Report Type: 
  Country: None (occurrence: None)
  Receive Date: 20040921
  Receipt Date: 20040908
  Transmission Date: 20050211
  Serious: Yes (Life-Threatening, Hospitalization)
  Sender: FDA-Public Use
  Company Number: 2004-0007467

PATIENT
  Age: 61 Year
  Sex: Female

DRUGS (2)
  1. HEPSERA [Suspect]
     Dates: start: 20030101
  2. ZEFFIX (LAMIVUDINE) [Concomitant]

REACTIONS (3)
  - ATRIAL FIBRILLATION [None]
  - CEREBROVASCULAR ACCIDENT [None]
  - MYOCARDIAL INFARCTION [None]
